FAERS Safety Report 17852126 (Version 1)
Quarter: 2020Q2

REPORT INFORMATION
  Report Type: Spontaneous
  Country: FR (occurrence: FR)
  Receive Date: 20200602
  Receipt Date: 20200602
  Transmission Date: 20200714
  Serious: Yes (Hospitalization)
  Sender: FDA-Public Use
  Company Number: NVSC2020FR151963

PATIENT
  Age: 3 Year
  Sex: Male

DRUGS (1)
  1. BUDESONIDE. [Suspect]
     Active Substance: BUDESONIDE
     Indication: EAR TUBE INSERTION
     Dosage: 2 DF, QD
     Route: 055
     Dates: start: 20200201, end: 20200215

REACTIONS (5)
  - Behaviour disorder [Recovered/Resolved]
  - Aggression [Recovered/Resolved]
  - Drooling [Recovered/Resolved]
  - Crying [Recovered/Resolved]
  - Screaming [Recovered/Resolved]

NARRATIVE: CASE EVENT DATE: 20200204
